FAERS Safety Report 14299910 (Version 1)
Quarter: 2017Q4

REPORT INFORMATION
  Report Type: Spontaneous
  Country: US (occurrence: US)
  Receive Date: 20171219
  Receipt Date: 20171219
  Transmission Date: 20180321
  Serious: No
  Sender: FDA-Public Use
  Company Number: US-BIOGEN-2017BI00496683

PATIENT
  Sex: Female

DRUGS (1)
  1. PLEGRIDY [Suspect]
     Active Substance: PEGINTERFERON BETA-1A
     Indication: MULTIPLE SCLEROSIS
     Route: 065
     Dates: start: 20170221

REACTIONS (6)
  - Road traffic accident [Recovered/Resolved]
  - Venous injury [Unknown]
  - Pain [Unknown]
  - Injection site haemorrhage [Unknown]
  - Visual impairment [Unknown]
  - Malaise [Unknown]
